FAERS Safety Report 13688572 (Version 2)
Quarter: 2019Q2

REPORT INFORMATION
  Report Type: Spontaneous
  Country: FR (occurrence: FR)
  Receive Date: 20170626
  Receipt Date: 20190521
  Transmission Date: 20190711
  Serious: Yes (Hospitalization, Other)
  Sender: FDA-Public Use
  Company Number: FR-ACCORD-053003

PATIENT
  Age: 52 Year
  Sex: Female

DRUGS (1)
  1. TOPIRAMATE. [Suspect]
     Active Substance: TOPIRAMATE
     Indication: MIGRAINE PROPHYLAXIS
     Dates: start: 2011, end: 2013

REACTIONS (2)
  - Condition aggravated [Recovered/Resolved with Sequelae]
  - Benign familial pemphigus [Recovered/Resolved with Sequelae]
